FAERS Safety Report 6333427-1 (Version None)
Quarter: 2009Q3

REPORT INFORMATION
  Report Type: 
  Country: None (occurrence: None)
  Receive Date: 20090828
  Receipt Date: 20090817
  Transmission Date: 20100115
  Serious: Yes (Hospitalization)
  Sender: FDA-Public Use
  Company Number: US-ELI_LILLY_AND_COMPANY-US200904000511

PATIENT
  Sex: Male
  Weight: 133.79 kg

DRUGS (7)
  1. ZYPREXA [Suspect]
     Dates: start: 20020101, end: 20040101
  2. ZYPREXA [Suspect]
     Dosage: 5 MG, UNK
     Dates: start: 20030201, end: 20050901
  3. MIRTAZAPINE [Concomitant]
     Dates: start: 20040101, end: 20050101
  4. LISINOPRIL [Concomitant]
  5. ABILIFY [Concomitant]
  6. RITALIN [Concomitant]
  7. ZETIA [Concomitant]

REACTIONS (6)
  - BLOOD CHOLESTEROL ABNORMAL [None]
  - GALLBLADDER DISORDER [None]
  - HYPERGLYCAEMIA [None]
  - HYPERTENSION [None]
  - TYPE 2 DIABETES MELLITUS [None]
  - WEIGHT INCREASED [None]
